FAERS Safety Report 9342497 (Version 1)
Quarter: 2013Q2

REPORT INFORMATION
  Report Type: Spontaneous
  Country: BR (occurrence: BR)
  Receive Date: 20130611
  Receipt Date: 20130611
  Transmission Date: 20140414
  Serious: Yes (Other)
  Sender: FDA-Public Use
  Company Number: BR-PFIZER INC-2013172366

PATIENT
  Age: 70 Year
  Sex: Female
  Weight: 59 kg

DRUGS (3)
  1. LIPITOR [Suspect]
     Indication: BLOOD CHOLESTEROL
     Dosage: 20 MG, 2X/DAY
     Route: 048
     Dates: start: 201107, end: 201107
  2. ARADOIS [Concomitant]
     Indication: BLOOD PRESSURE
     Dosage: 1 DF, 2X/DAY
     Dates: start: 200906
  3. LASILIX [Concomitant]
     Indication: URINARY INCONTINENCE
     Dosage: 1 DF, 1X/DAY
     Dates: start: 200906

REACTIONS (1)
  - Glaucoma [Unknown]
